FAERS Safety Report 4848009-8 (Version None)
Quarter: 2005Q4

REPORT INFORMATION
  Report Type: 
  Country: None (occurrence: None)
  Receive Date: 20051206
  Receipt Date: 20051121
  Transmission Date: 20060501
  Serious: Yes (Other)
  Sender: FDA-Public Use
  Company Number: 12953

PATIENT
  Age: 53 Year
  Sex: Male

DRUGS (13)
  1. MITOXANTRONE [Suspect]
     Dosage: 10 MG/M2 DAILY
  2. VINCRISTINE [Suspect]
     Dosage: 2 MG DAILY
  3. CYCLOPHOSPHAMIDE [Suspect]
     Dosage: 750 MG/M2 DAILY
  4. PREDNISONE TAB [Suspect]
     Dosage: 100 MG DAILY
  5. RITUXIMAB [Suspect]
     Dosage: 375 MG/M2 DAILY
  6. FOLIC ACID [Concomitant]
  7. METOPROLOL [Concomitant]
  8. ISOSORBIDE MONONITRATE [Concomitant]
  9. AMLODIPINE [Concomitant]
  10. ASPIRIN [Concomitant]
  11. NAPROXEN [Concomitant]
  12. IBUPROFEN [Concomitant]
  13. TEMAZEPAM [Concomitant]

REACTIONS (8)
  - BLOOD IRON DECREASED [None]
  - BONE MARROW FAILURE [None]
  - CANDIDIASIS [None]
  - HYPOXIA [None]
  - MUCOSAL INFLAMMATION [None]
  - NEUTROPENIA [None]
  - STOMATITIS [None]
  - WEIGHT DECREASED [None]
